FAERS Safety Report 14790157 (Version 1)
Quarter: 2018Q2

REPORT INFORMATION
  Report Type: Spontaneous
  Country: US (occurrence: US)
  Receive Date: 20180423
  Receipt Date: 20180423
  Transmission Date: 20180711
  Serious: No
  Sender: FDA-Public Use
  Company Number: US-MISSION PHARMACAL COMPANY-2046269

PATIENT
  Age: 38 Year
  Sex: Male

DRUGS (2)
  1. THIOLA [Suspect]
     Active Substance: TIOPRONIN
     Indication: NEPHROLITHIASIS
     Route: 065
     Dates: start: 20180224
  2. SODIUM CITRATE. [Concomitant]
     Active Substance: SODIUM CITRATE
     Route: 048

REACTIONS (1)
  - Nausea [Unknown]
